FAERS Safety Report 20327466 (Version 4)
Quarter: 2022Q1

REPORT INFORMATION
  Report Type: Report from Study
  Country: US (occurrence: US)
  Receive Date: 20220112
  Receipt Date: 20220317
  Transmission Date: 20220423
  Serious: No
  Sender: FDA-Public Use
  Company Number: US-NOVARTISTESTPH-NVSC2022US005255

PATIENT
  Sex: Female
  Weight: 126.98 kg

DRUGS (4)
  1. TREPROSTINIL [Suspect]
     Active Substance: TREPROSTINIL
     Indication: Pulmonary arterial hypertension
     Dosage: 109 NANOGRAM PER KILOGRAM, CONT (DOSE: 109 NG/KG/MIN)
     Route: 042
     Dates: start: 20211112
  2. TREPROSTINIL [Suspect]
     Active Substance: TREPROSTINIL
     Dosage: 109 NANOGRAM PER KILOGRAM (DOSE: 109 NG/KG/MIN)
     Route: 042
     Dates: start: 20211112
  3. OPSUMIT [Concomitant]
     Active Substance: MACITENTAN
     Indication: Pulmonary arterial hypertension
     Dosage: UNK
     Route: 065
  4. ADCIRCA [Concomitant]
     Active Substance: TADALAFIL
     Indication: Pulmonary arterial hypertension
     Dosage: UNK
     Route: 065

REACTIONS (7)
  - COVID-19 [Recovered/Resolved]
  - Head discomfort [Unknown]
  - Myalgia [Unknown]
  - Cough [Unknown]
  - Fatigue [Unknown]
  - Sinus congestion [Unknown]
  - Sinusitis [Unknown]
